FAERS Safety Report 4829704-3 (Version None)
Quarter: 2005Q4

REPORT INFORMATION
  Report Type: 
  Country: None (occurrence: None)
  Receive Date: 20051116
  Receipt Date: 20051108
  Transmission Date: 20060501
  Serious: Yes (Hospitalization)
  Sender: FDA-Public Use
  Company Number: US-MERCK-0511USA01659

PATIENT
  Age: 53 Year
  Sex: Female
  Weight: 89 kg

DRUGS (4)
  1. VIOXX [Suspect]
     Indication: ARTHRALGIA
     Route: 048
     Dates: start: 20010403, end: 20040501
  2. VIOXX [Suspect]
     Route: 048
     Dates: start: 20010403, end: 20040501
  3. EFFEXOR [Suspect]
     Route: 065
  4. NEURONTIN [Suspect]
     Route: 065

REACTIONS (9)
  - ADVERSE EVENT [None]
  - AORTIC VALVE DISEASE [None]
  - CARDIAC DISORDER [None]
  - CARDIOMEGALY [None]
  - CHEST PAIN [None]
  - LUNG DISORDER [None]
  - MYOCARDIAL INFARCTION [None]
  - PULMONARY HYPERTENSION [None]
  - SUICIDE ATTEMPT [None]
